FAERS Safety Report 9115986 (Version 1)
Quarter: 2013Q1

REPORT INFORMATION
  Report Type: Spontaneous
  Country: FR (occurrence: FR)
  Receive Date: 20130225
  Receipt Date: 20130225
  Transmission Date: 20140127
  Serious: Yes (Hospitalization, Other)
  Sender: FDA-Public Use
  Company Number: FR-ELI_LILLY_AND_COMPANY-FR201302005506

PATIENT
  Age: 85 Year
  Sex: Male

DRUGS (3)
  1. PROZAC [Suspect]
     Dosage: 1 DF, UNKNOWN
     Route: 048
     Dates: start: 20121029, end: 20121105
  2. EFFEXOR [Concomitant]
  3. CIFLOX [Concomitant]

REACTIONS (6)
  - Renal failure acute [Unknown]
  - Confusional state [Recovered/Resolved]
  - Urinary retention [Recovered/Resolved]
  - Delirium [Recovered/Resolved]
  - Incoherent [Unknown]
  - Anxiety [Recovered/Resolved]
